FAERS Safety Report 22180076 (Version 1)
Quarter: 2023Q2

REPORT INFORMATION
  Report Type: Spontaneous
  Country: US (occurrence: US)
  Receive Date: 20230406
  Receipt Date: 20230406
  Transmission Date: 20230722
  Serious: No
  Sender: FDA-Public Use
  Company Number: US-BIOGEN-2022BI01097898

PATIENT
  Sex: Female

DRUGS (15)
  1. TYSABRI [Suspect]
     Active Substance: NATALIZUMAB
     Indication: Multiple sclerosis
     Route: 050
     Dates: start: 20220214
  2. TYSABRI [Suspect]
     Active Substance: NATALIZUMAB
     Dosage: 300 MG/15 ML, VIAL (300 MG/ 15 ML) IN 100 ML OF 0.9 PERCENT SODIUM CHLORIDE AND INFUSE IV OVER 1 ...
     Route: 050
  3. ASPIRIN [Concomitant]
     Active Substance: ASPIRIN
     Route: 050
  4. BACLOFEN [Concomitant]
     Active Substance: BACLOFEN
     Dosage: QHS
     Route: 050
  5. CARBAMAZEPINE [Concomitant]
     Active Substance: CARBAMAZEPINE
     Route: 050
  6. CYCLOBENZAPRINE [Concomitant]
     Active Substance: CYCLOBENZAPRINE
     Route: 050
  7. VENLAFAXINE HCL [Concomitant]
     Active Substance: VENLAFAXINE HYDROCHLORIDE
     Dosage: EFFEXOR XR CAPSULE EXTENDED RELEASE
     Route: 050
  8. LEXAPRO [Concomitant]
     Active Substance: ESCITALOPRAM OXALATE
     Route: 050
  9. LINZESS [Concomitant]
     Active Substance: LINACLOTIDE
     Dosage: AT NIGHT
     Route: 050
  10. MODERNA COVID-19 VACCINE [Concomitant]
     Active Substance: ELASOMERAN
     Dosage: 100 MCG/0.5 ML FOR 2 PLUS 1 BOOSTER
     Route: 050
  11. NORTRIPTYLINE [Concomitant]
     Active Substance: NORTRIPTYLINE
     Dosage: EVERY NIGHT AT BED TIME
     Route: 050
  12. PLAVIX [Concomitant]
     Active Substance: CLOPIDOGREL BISULFATE
     Route: 050
  13. PREGABALIN [Concomitant]
     Active Substance: PREGABALIN
     Route: 050
  14. VIMPAT [Concomitant]
     Active Substance: LACOSAMIDE
     Route: 050
  15. XANAX [Concomitant]
     Active Substance: ALPRAZOLAM
     Route: 050

REACTIONS (4)
  - Cognitive disorder [Unknown]
  - Aphasia [Unknown]
  - Fatigue [Unknown]
  - Headache [Unknown]
